FAERS Safety Report 5597097-2 (Version None)
Quarter: 2007Q4

REPORT INFORMATION
  Report Type: 
  Country: None (occurrence: None)
  Receive Date: 20071221
  Receipt Date: 20070831
  Transmission Date: 20080405
  Serious: No
  Sender: FDA-Public Use
  Company Number: SPV1-2007-04037

PATIENT
  Age: 6 Year
  Sex: Male

DRUGS (11)
  1. VYVANSE [Suspect]
     Dates: start: 20070830
  2. DAYTRANA [Concomitant]
  3. VYTORIN [Concomitant]
  4. COZAAR [Concomitant]
  5. AZATHIOPRINE [Concomitant]
  6. PREDNISONE TAB [Concomitant]
  7. ENALAPRIL MALEATE [Concomitant]
  8. PREVACID [Concomitant]
  9. LACTAID (TILACTASE) [Concomitant]
  10. SULFMETHOXAZOLE (SULFAMETHOXAZOLE) [Concomitant]
  11. PHENAZOPYRIDINE (PHENAZOPYRIDINE) [Concomitant]

REACTIONS (4)
  - DECREASED APPETITE [None]
  - INSOMNIA [None]
  - NAUSEA [None]
  - VOMITING [None]
